FAERS Safety Report 8802728 (Version 4)
Quarter: 2013Q3

REPORT INFORMATION
  Report Type: Spontaneous
  Country: NO (occurrence: NO)
  Receive Date: 20120921
  Receipt Date: 20130909
  Transmission Date: 20140515
  Serious: Yes (Hospitalization, Congenital Anomaly)
  Sender: FDA-Public Use
  Company Number: NO-009507513-1209NOR008779

PATIENT
  Age: 0 None
  Sex: Female

DRUGS (4)
  1. TRILAFON [Suspect]
     Dosage: UNK
     Route: 064
  2. ORFIRIL [Suspect]
     Indication: EPILEPSY
     Dosage: UNK
     Route: 064
  3. DISIPAL [Suspect]
     Dosage: TREATMENT CONTINUED AFTER BIRTH, STOP DATE 20020927
     Route: 064
     Dates: end: 20020927
  4. LAMICTAL [Suspect]
     Dosage: DURING FIRST TRIMESTER OF PREGNANCY
     Route: 064

REACTIONS (10)
  - Withdrawal syndrome [Recovered/Resolved]
  - Vitamin K deficiency [Unknown]
  - Epilepsy [Unknown]
  - Moderate mental retardation [Unknown]
  - Attention deficit/hyperactivity disorder [Not Recovered/Not Resolved]
  - Cognitive disorder [Unknown]
  - Sensorimotor disorder [Unknown]
  - Dyskinesia [Unknown]
  - Foetal exposure during pregnancy [Recovered/Resolved]
  - Exposure during breast feeding [Recovered/Resolved]
